FAERS Safety Report 5725215-1 (Version None)
Quarter: 2008Q2

REPORT INFORMATION
  Report Type: 
  Country: None (occurrence: None)
  Receive Date: 20080501
  Receipt Date: 20080422
  Transmission Date: 20081010
  Serious: Yes (Death, Hospitalization)
  Sender: FDA-Public Use
  Company Number: B0518520A

PATIENT
  Age: 63 Year
  Sex: Female

DRUGS (8)
  1. HYCAMTIN [Suspect]
     Indication: OVARIAN CANCER
     Dosage: 3MG PER DAY
     Route: 042
     Dates: start: 20080227, end: 20080302
  2. SANDOSTATIN [Concomitant]
     Route: 042
  3. PERFALGAN [Concomitant]
  4. DURAGESIC-100 [Concomitant]
     Route: 062
  5. BETAPRED [Concomitant]
     Route: 042
  6. PRIMPERAN TAB [Concomitant]
     Route: 042
  7. MORPHINE [Concomitant]
     Route: 008
  8. DIKLOFENAK [Concomitant]

REACTIONS (5)
  - ADVERSE DRUG REACTION [None]
  - BLOOD CREATININE INCREASED [None]
  - NEUTROPENIA [None]
  - PANCYTOPENIA [None]
  - SEPTIC SHOCK [None]
